FAERS Safety Report 9699294 (Version 1)
Quarter: 2013Q4

REPORT INFORMATION
  Report Type: Spontaneous
  Country: US (occurrence: US)
  Receive Date: 20131120
  Receipt Date: 20131120
  Transmission Date: 20140711
  Serious: No
  Sender: FDA-Public Use
  Company Number: US-GILEAD-2008-0015461

PATIENT
  Age: 66 Year
  Sex: Female

DRUGS (5)
  1. LETAIRIS [Suspect]
     Indication: COR PULMONALE CHRONIC
     Route: 048
     Dates: start: 20080102
  2. CARVEDILOL [Concomitant]
     Route: 048
     Dates: start: 20080211
  3. AMLODIPINE [Concomitant]
  4. LASIX [Concomitant]
  5. ZOCOR [Concomitant]

REACTIONS (2)
  - Vomiting [None]
  - Diarrhoea [None]
